FAERS Safety Report 5179160-3 (Version None)
Quarter: 2006Q4

REPORT INFORMATION
  Report Type: 
  Country: None (occurrence: None)
  Receive Date: 20061219
  Receipt Date: 20061212
  Transmission Date: 20070319
  Serious: Yes (Death)
  Sender: FDA-Public Use
  Company Number: IN-BRISTOL-MYERS SQUIBB COMPANY-13611223

PATIENT
  Age: 61 Year
  Sex: Male

DRUGS (1)
  1. BARACLUDE TABS [Suspect]
     Indication: HEPATITIS B
     Route: 048
     Dates: start: 20061001, end: 20061201

REACTIONS (1)
  - HEPATORENAL SYNDROME [None]
